FAERS Safety Report 6413356-5 (Version None)
Quarter: 2009Q4

REPORT INFORMATION
  Report Type: 
  Country: None (occurrence: None)
  Receive Date: 20091026
  Receipt Date: 20091015
  Transmission Date: 20100525
  Serious: Yes (Death, Hospitalization)
  Sender: FDA-Public Use
  Company Number: GB-AMGEN-UK369466

PATIENT
  Sex: Male
  Weight: 164.3 kg

DRUGS (2)
  1. PANITUMUMAB [Suspect]
     Indication: COLORECTAL CANCER
     Route: 042
     Dates: start: 20090729, end: 20090923
  2. IRINOTECAN HCL [Suspect]
     Route: 042
     Dates: start: 20090729, end: 20090923

REACTIONS (2)
  - ACUTE ABDOMEN [None]
  - NEUTROPENIA [None]
